FAERS Safety Report 9319639 (Version 3)
Quarter: 2013Q3

REPORT INFORMATION
  Report Type: Spontaneous
  Country: US (occurrence: US)
  Receive Date: 20130530
  Receipt Date: 20130924
  Transmission Date: 20140515
  Serious: Yes (Death, Hospitalization)
  Sender: FDA-Public Use
  Company Number: US-GLAXOSMITHKLINE-A1017705A

PATIENT
  Age: 56 Year
  Sex: Female

DRUGS (3)
  1. FLOLAN [Suspect]
     Indication: COR PULMONALE CHRONIC
     Dosage: 6NGKM CONTINUOUS
     Route: 042
     Dates: start: 20130131
  2. TRACLEER [Concomitant]
  3. REVATIO [Concomitant]

REACTIONS (4)
  - Peritoneal haemorrhage [Fatal]
  - Therapeutic embolisation [Recovered/Resolved]
  - Abdominal pain [Unknown]
  - Intra-abdominal haemorrhage [Unknown]
